FAERS Safety Report 10063758 (Version 1)
Quarter: 2014Q2

REPORT INFORMATION
  Report Type: Spontaneous
  Country: CA (occurrence: CA)
  Receive Date: 20140408
  Receipt Date: 20140408
  Transmission Date: 20141212
  Serious: Yes (Other)
  Sender: FDA-Public Use
  Company Number: CA-ROCHE-1375724

PATIENT
  Age: 52 Year
  Sex: Female
  Weight: 90 kg

DRUGS (7)
  1. ACTEMRA [Suspect]
     Indication: PRODUCT USED FOR UNKNOWN INDICATION
     Route: 042
  2. CELEBREX [Suspect]
     Indication: PRODUCT USED FOR UNKNOWN INDICATION
     Route: 065
  3. TYLENOL WITH CODEINE #3 (UNITED STATES) [Suspect]
     Indication: PRODUCT USED FOR UNKNOWN INDICATION
     Route: 065
  4. ATACAND PLUS [Concomitant]
     Route: 065
  5. NEXIUM [Concomitant]
     Route: 065
  6. PAXIL [Concomitant]
     Route: 065
  7. PERCOCET [Concomitant]
     Route: 065

REACTIONS (3)
  - Hepatic enzyme increased [Not Recovered/Not Resolved]
  - Hepatic pain [Not Recovered/Not Resolved]
  - Hepatic steatosis [Not Recovered/Not Resolved]
